FAERS Safety Report 11401652 (Version 3)
Quarter: 2019Q3

REPORT INFORMATION
  Report Type: Spontaneous
  Country: CA (occurrence: CA)
  Receive Date: 20150821
  Receipt Date: 20190923
  Transmission Date: 20191004
  Serious: Yes (Death)
  Sender: FDA-Public Use
  Company Number: CA-ROCHE-1624208

PATIENT
  Age: 7 Decade
  Sex: Female

DRUGS (2)
  1. TREANDA [Suspect]
     Active Substance: BENDAMUSTINE HYDROCHLORIDE
     Indication: B-CELL LYMPHOMA
     Dosage: SINGLE-USE VIAL IV INFUSION ONLY (POWDER FOR SOULTION INTRAVENOUS)
     Route: 042
     Dates: start: 2013
  2. RITUXAN [Suspect]
     Active Substance: RITUXIMAB
     Indication: B-CELL LYMPHOMA
     Dosage: CYCLIC
     Route: 041
     Dates: start: 2013, end: 2014

REACTIONS (1)
  - Death [Fatal]
